FAERS Safety Report 6052941-X (Version None)
Quarter: 2009Q1

REPORT INFORMATION
  Report Type: 
  Country: None (occurrence: None)
  Receive Date: 20090127
  Receipt Date: 20090121
  Transmission Date: 20090719
  Serious: Yes (Death)
  Sender: FDA-Public Use
  Company Number: IL-NOVOPROD-283383

PATIENT
  Age: 28 Year
  Sex: Male

DRUGS (1)
  1. NOVOSEVEN [Suspect]
     Indication: HAEMORRHAGE
     Dosage: 6 MG, UNK
     Route: 042
     Dates: start: 20081201, end: 20081201

REACTIONS (1)
  - MULTI-ORGAN FAILURE [None]
